FAERS Safety Report 7132542-2 (Version None)
Quarter: 2010Q4

REPORT INFORMATION
  Report Type: 
  Country: None (occurrence: None)
  Receive Date: 20101202
  Receipt Date: 20101126
  Transmission Date: 20110411
  Serious: Yes (Life-Threatening)
  Sender: FDA-Public Use
  Company Number: PHHY2010FR81229

PATIENT
  Age: 27 Year
  Sex: Female

DRUGS (2)
  1. SYNTOCINON [Suspect]
     Dosage: UNK
     Route: 042
     Dates: start: 20100816, end: 20100816
  2. GLUCOSE [Suspect]
     Dosage: UNK
     Route: 042
     Dates: start: 20100816

REACTIONS (3)
  - CONVULSION [None]
  - HYPOGLYCAEMIA [None]
  - PROTEIN URINE PRESENT [None]
